FAERS Safety Report 5019931-7 (Version None)
Quarter: 2006Q2

REPORT INFORMATION
  Report Type: 
  Country: None (occurrence: None)
  Receive Date: 20060605
  Receipt Date: 20060605
  Transmission Date: 20061013
  Serious: Yes (Hospitalization, Other)
  Sender: FDA-Public Use
  Company Number: None

PATIENT
  Age: 23 Year
  Sex: Female
  Weight: 81.6475 kg

DRUGS (2)
  1. ALDARA [Suspect]
     Indication: CONDYLOMA ACUMINATUM
     Dosage: ONE PACKAGE   3 TIMES A WEEK   TOP
     Route: 061
     Dates: start: 20060424, end: 20060429
  2. ALDARA [Suspect]
     Indication: PAPILLOMA VIRAL INFECTION
     Dosage: ONE PACKAGE   3 TIMES A WEEK   TOP
     Route: 061
     Dates: start: 20060424, end: 20060429

REACTIONS (11)
  - APPLICATION SITE IRRITATION [None]
  - CONDITION AGGRAVATED [None]
  - CONDYLOMA ACUMINATUM [None]
  - DEAFNESS UNILATERAL [None]
  - DIZZINESS [None]
  - EAR INFECTION [None]
  - EAR PAIN [None]
  - HEADACHE [None]
  - INFLUENZA LIKE ILLNESS [None]
  - PHARYNGOLARYNGEAL PAIN [None]
  - PYREXIA [None]
